FAERS Safety Report 12606865 (Version 1)
Quarter: 2016Q3

REPORT INFORMATION
  Report Type: Spontaneous
  Country: ES (occurrence: ES)
  Receive Date: 20160729
  Receipt Date: 20160729
  Transmission Date: 20161109
  Serious: Yes (Other)
  Sender: FDA-Public Use
  Company Number: PHHY2016ES101009

PATIENT
  Age: 66 Year
  Sex: Female

DRUGS (4)
  1. PRAMIPEXOLE. [Suspect]
     Active Substance: PRAMIPEXOLE
     Indication: PARKINSONIAN GAIT
     Dosage: 3.15 MG, QD
     Route: 065
  2. RASAGILINE [Concomitant]
     Active Substance: RASAGILINE
     Indication: PRODUCT USED FOR UNKNOWN INDICATION
     Route: 065
  3. LEVODOPA [Concomitant]
     Active Substance: LEVODOPA
     Indication: PARKINSONIAN GAIT
     Dosage: 600 MG, QD
     Route: 065
  4. LEVODOPA [Concomitant]
     Active Substance: LEVODOPA
     Dosage: 800 MG, UNK
     Route: 065

REACTIONS (4)
  - Abasia [Unknown]
  - Condition aggravated [Unknown]
  - Parkinsonian gait [Unknown]
  - Drug ineffective [Unknown]
